FAERS Safety Report 16490524 (Version 1)
Quarter: 2019Q3

REPORT INFORMATION
  Report Type: Spontaneous
  Country: US (occurrence: US)
  Receive Date: 20190627
  Receipt Date: 20190627
  Transmission Date: 20191004
  Serious: Yes (Other)
  Sender: FDA-Public Use
  Company Number: None

PATIENT
  Age: 52 Year
  Sex: Female
  Weight: 65.25 kg

DRUGS (3)
  1. SOMADERM HGH GEL [Suspect]
     Active Substance: HOMEOPATHICS
     Indication: WEIGHT CONTROL
     Route: 061
     Dates: start: 20180410, end: 20181020
  2. SOMADERM HGH GEL [Suspect]
     Active Substance: HOMEOPATHICS
     Indication: ASTHENIA
     Route: 061
     Dates: start: 20180410, end: 20181020
  3. SOMADERM HGH GEL [Suspect]
     Active Substance: HOMEOPATHICS
     Indication: INSOMNIA
     Route: 061
     Dates: start: 20180410, end: 20181020

REACTIONS (3)
  - Product formulation issue [None]
  - Weight increased [None]
  - Breast enlargement [None]

NARRATIVE: CASE EVENT DATE: 20180830
